FAERS Safety Report 6095249-9 (Version None)
Quarter: 2009Q1

REPORT INFORMATION
  Report Type: 
  Country: None (occurrence: None)
  Receive Date: 20090227
  Receipt Date: 20080221
  Transmission Date: 20090719
  Serious: No
  Sender: FDA-Public Use
  Company Number: A0711021A

PATIENT
  Age: 55 Year
  Sex: Female

DRUGS (8)
  1. LAMICTAL [Suspect]
     Indication: CRYING
     Dosage: 75MG PER DAY
     Route: 048
     Dates: start: 20071220
  2. WELLBUTRIN XL [Concomitant]
  3. CYTOMEL [Concomitant]
  4. INSULIN [Concomitant]
  5. VYTORIN [Concomitant]
  6. VESICARE [Concomitant]
  7. VITAMIN B COMPLEX CAP [Concomitant]
  8. CALCIUM [Concomitant]

REACTIONS (1)
  - URETHRAL PAIN [None]
